FAERS Safety Report 24565961 (Version 2)
Quarter: 2024Q4

REPORT INFORMATION
  Report Type: Spontaneous
  Country: TR (occurrence: TR)
  Receive Date: 20241030
  Receipt Date: 20241120
  Transmission Date: 20250114
  Serious: Yes (Other)
  Sender: NOVARTIS
  Company Number: TR-002147023-NVSC2024TR207932

PATIENT
  Age: 58 Year
  Sex: Female

DRUGS (1)
  1. ASCIMINIB [Suspect]
     Active Substance: ASCIMINIB
     Indication: Product used for unknown indication
     Dosage: 2X40 MG (15 DAYS BREAK,NOW STARTING THE MEDICATION AGAIN)
     Route: 065

REACTIONS (1)
  - Pulmonary hypertension [Unknown]
